FAERS Safety Report 17733497 (Version 1)
Quarter: 2020Q2

REPORT INFORMATION
  Report Type: Spontaneous
  Country: US (occurrence: US)
  Receive Date: 20200430
  Receipt Date: 20200430
  Transmission Date: 20200714
  Serious: No
  Sender: FDA-Public Use
  Company Number: None

PATIENT
  Age: 17 Year
  Sex: Female
  Weight: 67.5 kg

DRUGS (2)
  1. PLEXION [Concomitant]
     Active Substance: SULFACETAMIDE SODIUM\SULFUR
     Dates: start: 20200410, end: 20200424
  2. PLEXION CLEANSER [Suspect]
     Active Substance: SULFACETAMIDE SODIUM\SULFUR
     Indication: ACNE
     Route: 061
     Dates: start: 20200410, end: 20200424

REACTIONS (1)
  - Hypersensitivity [None]
